FAERS Safety Report 16847140 (Version 1)
Quarter: 2019Q3

REPORT INFORMATION
  Report Type: Spontaneous
  Country: US (occurrence: US)
  Receive Date: 20190924
  Receipt Date: 20190924
  Transmission Date: 20191005
  Serious: Yes (Death, Life-Threatening)
  Sender: FDA-Public Use
  Company Number: US-TEVA-2019-US-1112153

PATIENT
  Age: 27 Year
  Sex: Male

DRUGS (6)
  1. PENTAMINIDINE [Suspect]
     Active Substance: PENTAMIDINE
     Indication: ACANTHAMOEBA INFECTION
     Route: 065
  2. FLUCONAZOLE. [Suspect]
     Active Substance: FLUCONAZOLE
     Indication: ACANTHAMOEBA INFECTION
     Route: 065
  3. AZITHROMYCIN ANHYDROUS. [Suspect]
     Active Substance: AZITHROMYCIN ANHYDROUS
     Indication: ACANTHAMOEBA INFECTION
     Route: 065
  4. MILTIFOSINE [Suspect]
     Active Substance: MILTEFOSINE
     Indication: ACANTHAMOEBA INFECTION
     Route: 065
  5. FLUCYTOSINE. [Suspect]
     Active Substance: FLUCYTOSINE
     Indication: ACANTHAMOEBA INFECTION
     Route: 065
  6. SULFDIAZINE [Suspect]
     Active Substance: SULFADIAZINE
     Indication: ACANTHAMOEBA INFECTION
     Route: 065

REACTIONS (1)
  - Drug ineffective [Fatal]
